FAERS Safety Report 9255216 (Version 2)
Quarter: 2013Q2

REPORT INFORMATION
  Report Type: Report from Study
  Country: US (occurrence: US)
  Receive Date: 20130425
  Receipt Date: 20130502
  Transmission Date: 20140414
  Serious: Yes (Hospitalization, Other)
  Sender: FDA-Public Use
  Company Number: US-ABBOTT-13P-163-1077902-00

PATIENT
  Sex: Female

DRUGS (3)
  1. HUMIRA PEN [Suspect]
     Indication: RHEUMATOID ARTHRITIS
     Route: 058
     Dates: start: 2003, end: 201304
  2. HUMIRA PEN [Suspect]
     Dates: start: 201304
  3. UNKNOWN MEDICATION [Concomitant]
     Indication: HYPERTENSION

REACTIONS (11)
  - Intentional self-injury [Recovered/Resolved]
  - Formication [Recovered/Resolved]
  - Dehydration [Recovered/Resolved]
  - Blood potassium abnormal [Recovered/Resolved]
  - Vertigo positional [Recovering/Resolving]
  - Pain [Not Recovered/Not Resolved]
  - Acute psychosis [Recovered/Resolved]
  - Electrolyte imbalance [Recovered/Resolved]
  - Impaired self-care [Unknown]
  - Skin lesion [Not Recovered/Not Resolved]
  - Wound infection [Unknown]
